FAERS Safety Report 5134700-5 (Version None)
Quarter: 2006Q4

REPORT INFORMATION
  Report Type: 
  Country: None (occurrence: None)
  Receive Date: 20061025
  Receipt Date: 20061013
  Transmission Date: 20070319
  Serious: Yes (Other)
  Sender: FDA-Public Use
  Company Number: JP-BRISTOL-MYERS SQUIBB COMPANY-13552070

PATIENT
  Age: 62 Year
  Sex: Female

DRUGS (5)
  1. ENDOXAN [Suspect]
     Indication: BREAST CANCER
  2. TAXOL [Suspect]
     Indication: BREAST CANCER
  3. NAVELBINE [Suspect]
     Indication: BREAST CANCER STAGE III
     Route: 042
     Dates: start: 20060101
  4. HERCEPTIN [Suspect]
     Indication: BREAST CANCER STAGE III
     Route: 042
     Dates: start: 20060101
  5. ADRIAMYCIN PFS [Suspect]
     Indication: BREAST CANCER

REACTIONS (2)
  - ACUTE MYELOID LEUKAEMIA [None]
  - PANCYTOPENIA [None]
